FAERS Safety Report 9884918 (Version 4)
Quarter: 2014Q2

REPORT INFORMATION
  Report Type: Report from Study
  Country: ES (occurrence: ES)
  Receive Date: 20140210
  Receipt Date: 20140624
  Transmission Date: 20141212
  Serious: Yes (Hospitalization)
  Sender: FDA-Public Use
  Company Number: PHHO2011ES17125

PATIENT
  Sex: 0

DRUGS (12)
  1. ACZ885 [Suspect]
     Indication: HYPER IGD SYNDROME
     Dosage: 300 MG, EVERY 6 WEEKS
     Route: 058
     Dates: start: 20111031
  2. ARANESP [Concomitant]
     Indication: ANAEMIA
     Dosage: 100 UG, UNK
     Route: 058
     Dates: start: 20030330
  3. DOXAZOCIN [Concomitant]
     Indication: HYPERTENSION
     Dosage: 8 MG, UNK
     Dates: start: 20110308, end: 20131216
  4. DOXAZOCIN [Concomitant]
     Dosage: 8 MG, UNK
     Route: 048
     Dates: start: 20131216
  5. AMLODIPIN [Concomitant]
     Indication: HYPERTENSION
     Dosage: 10 MG, UNK
     Dates: start: 20120618, end: 20130316
  6. AMLODIPIN [Concomitant]
     Dosage: 10 MG, TID
     Route: 048
     Dates: start: 20131216
  7. IRBESARTAN [Concomitant]
     Indication: HYPERTENSION
     Dosage: 300 MG, UNK
     Dates: start: 20110222, end: 20120222
  8. IRBESARTAN [Concomitant]
     Dosage: 300 MG, UNK
     Route: 048
     Dates: start: 20120222
  9. ENALAPRIL [Concomitant]
     Indication: HYPERTENSION
     Dosage: 20 MG, TID
     Route: 048
     Dates: start: 20120222, end: 20120222
  10. ATENOLOL [Concomitant]
     Indication: HYPERTENSION
     Dosage: 50 MG, TID
     Route: 048
     Dates: start: 20100330, end: 20101030
  11. DARBEPOETIN ALFA [Concomitant]
     Indication: ANAEMIA
     Dosage: 100 MG/10 DAYS
     Dates: start: 20131216
  12. ALOPURINOL [Concomitant]
     Indication: HYPERURICAEMIA
     Dosage: 100 MG, QD
     Dates: start: 20110918

REACTIONS (1)
  - Lobar pneumonia [Recovered/Resolved]
